FAERS Safety Report 11591361 (Version 2)
Quarter: 2016Q2

REPORT INFORMATION
  Report Type: Report from Study
  Country: US (occurrence: US)
  Receive Date: 20151004
  Receipt Date: 20160612
  Transmission Date: 20160815
  Serious: No
  Sender: FDA-Public Use
  Company Number: US-AMGEN-USASP2015101899

PATIENT
  Age: 73 Year
  Sex: Female

DRUGS (2)
  1. ENBREL [Suspect]
     Active Substance: ETANERCEPT
     Indication: PAIN
     Dosage: 50 MG, QWK
     Route: 065
  2. ENBREL [Suspect]
     Active Substance: ETANERCEPT
     Indication: RHEUMATOID ARTHRITIS

REACTIONS (10)
  - Therapeutic response unexpected [Unknown]
  - Fear [Unknown]
  - Pain [Unknown]
  - Device issue [Unknown]
  - Fear of death [Unknown]
  - Arthralgia [Unknown]
  - Nervousness [Unknown]
  - Off label use [Unknown]
  - Hypersensitivity [Unknown]
  - Crying [Unknown]

NARRATIVE: CASE EVENT DATE: 20150928
